FAERS Safety Report 24171964 (Version 1)
Quarter: 2024Q3

REPORT INFORMATION
  Report Type: Spontaneous
  Country: US (occurrence: US)
  Receive Date: 20240805
  Receipt Date: 20240805
  Transmission Date: 20241017
  Serious: Yes (Hospitalization)
  Sender: NOVO NORDISK
  Company Number: US-NOVOPROD-1261642

PATIENT
  Age: 44 Year

DRUGS (1)
  1. OZEMPIC [Suspect]
     Active Substance: SEMAGLUTIDE
     Indication: Product used for unknown indication
     Dosage: UNK
     Route: 058
     Dates: start: 202304, end: 202310

REACTIONS (2)
  - Intestinal obstruction [Unknown]
  - Impaired gastric emptying [Unknown]
